FAERS Safety Report 25415915 (Version 1)
Quarter: 2025Q2

REPORT INFORMATION
  Report Type: Spontaneous
  Country: IN (occurrence: IN)
  Receive Date: 20250610
  Receipt Date: 20250610
  Transmission Date: 20250716
  Serious: Yes (Other)
  Sender: VALIDUS
  Company Number: IN-VALIDUS PHARMACEUTICALS LLC-VLDS-RB-2025-00061

PATIENT
  Age: 4 Year
  Sex: Female

DRUGS (2)
  1. CARBAMAZEPINE [Suspect]
     Active Substance: CARBAMAZEPINE
     Indication: Sleep related hypermotor epilepsy
     Route: 065
  2. CARBAMAZEPINE [Suspect]
     Active Substance: CARBAMAZEPINE
     Indication: Sleep related hypermotor epilepsy

REACTIONS (1)
  - Haemophagocytic lymphohistiocytosis [Recovered/Resolved]
